FAERS Safety Report 6283574-8 (Version None)
Quarter: 2009Q3

REPORT INFORMATION
  Report Type: 
  Country: None (occurrence: None)
  Receive Date: 20090722
  Receipt Date: 20090722
  Transmission Date: 20100115
  Serious: Yes (Hospitalization, Other)
  Sender: FDA-Public Use
  Company Number: None

PATIENT
  Age: 63 Year
  Sex: Female
  Weight: 127.0072 kg

DRUGS (2)
  1. TPN NOT KNOW- CHANGES FREQUENTLY [Suspect]
     Indication: INTESTINAL OBSTRUCTION
     Dosage: IS GIVEN OVER A 14 HOUR PERIOD EVERY NIGHT IV DRIP
     Route: 041
     Dates: start: 20090410, end: 20090721
  2. ANTIBIOTICS [Concomitant]

REACTIONS (5)
  - ABDOMINAL DISTENSION [None]
  - AMNESIA [None]
  - INFECTION [None]
  - LUNG INFECTION [None]
  - URINARY TRACT INFECTION [None]
